FAERS Safety Report 8430644-1 (Version None)
Quarter: 2012Q2

REPORT INFORMATION
  Report Type: 
  Country: None (occurrence: None)
  Receive Date: 20120612
  Receipt Date: 20120607
  Transmission Date: 20120825
  Serious: Yes (Other)
  Sender: FDA-Public Use
  Company Number: NL-PFIZER INC-2012137789

PATIENT
  Age: 39 Year
  Sex: Female

DRUGS (3)
  1. LYRICA [Suspect]
     Dosage: 150 MG, 1X/DAY
  2. LYRICA [Suspect]
     Dosage: 75 MG, 1X/DAY
  3. LYRICA [Suspect]
     Dosage: 75 MG, 2X/DAY

REACTIONS (4)
  - NAUSEA [None]
  - HEADACHE [None]
  - DIZZINESS [None]
  - DYSSTASIA [None]
